FAERS Safety Report 6822758-4 (Version None)
Quarter: 2010Q3

REPORT INFORMATION
  Report Type: 
  Country: None (occurrence: None)
  Receive Date: 20100708
  Receipt Date: 20100628
  Transmission Date: 20110219
  Serious: Yes (Other)
  Sender: FDA-Public Use
  Company Number: US-JNJFOC-20100601374

PATIENT
  Sex: Male

DRUGS (12)
  1. REMICADE [Suspect]
     Indication: RHEUMATOID ARTHRITIS
     Route: 042
  2. REMICADE [Suspect]
     Route: 042
  3. REMICADE [Suspect]
     Dosage: RE-INDUCTION
     Route: 042
  4. REMICADE [Suspect]
     Route: 042
  5. FLEXERIL [Concomitant]
  6. ULTRAM [Concomitant]
     Indication: PAIN
  7. PLAVIX [Concomitant]
  8. CELEBREX [Concomitant]
     Indication: RHEUMATOID ARTHRITIS
  9. RESTORIL [Concomitant]
     Indication: SLEEP DISORDER
  10. ZOCOR [Concomitant]
     Indication: BLOOD CHOLESTEROL ABNORMAL
  11. ACETAMINOPHEN [Concomitant]
     Indication: PREMEDICATION
  12. BENADRYL [Concomitant]
     Indication: PREMEDICATION

REACTIONS (2)
  - HEADACHE [None]
  - KNEE OPERATION [None]
